FAERS Safety Report 5228810-1 (Version None)
Quarter: 2007Q1

REPORT INFORMATION
  Report Type: 
  Country: None (occurrence: None)
  Receive Date: 20070205
  Receipt Date: 20070125
  Transmission Date: 20070707
  Serious: Yes (Hospitalization)
  Sender: FDA-Public Use
  Company Number: FR-BRISTOL-MYERS SQUIBB COMPANY-13663950

PATIENT
  Age: 87 Year
  Sex: Male

DRUGS (8)
  1. FOZITEC TABS 10 MG [Suspect]
     Route: 048
     Dates: end: 20070109
  2. FUROSEMIDE [Suspect]
     Indication: ACUTE PULMONARY OEDEMA
     Dosage: 04-JAN-2007 120 MG/DAY STARTED; 06-JAN-INCREASED TO 160 MG/DAY; 09-JAN-2007 REDUCED TO 40 MG/DAY
     Route: 048
     Dates: start: 20070104
  3. CEFTRIAXONE [Concomitant]
     Route: 042
     Dates: start: 20070104, end: 20070108
  4. OGAST [Concomitant]
     Route: 048
  5. ASPIRIN [Concomitant]
     Route: 048
  6. CALCIPARINE [Concomitant]
     Dates: end: 20070109
  7. SOTALOL HYDROCHLORIDE [Concomitant]
  8. RISORDAN [Concomitant]
     Route: 042
     Dates: start: 20070107, end: 20070109

REACTIONS (1)
  - RENAL FAILURE ACUTE [None]
